FAERS Safety Report 5727182-3 (Version None)
Quarter: 2008Q2

REPORT INFORMATION
  Report Type: 
  Country: None (occurrence: None)
  Receive Date: 20080430
  Receipt Date: 20080424
  Transmission Date: 20081010
  Serious: Yes (Death, Life-Threatening, Hospitalization)
  Sender: FDA-Public Use
  Company Number: 6042530

PATIENT
  Age: 93 Year
  Sex: Female

DRUGS (6)
  1. DETENSIEL (TABLET) (BISOPROLOL FUMARATE) [Suspect]
     Indication: DRUG USE FOR UNKNOWN INDICATION
     Dosage: 5 MG (5 MG, 1 D), ORAL
     Route: 048
     Dates: start: 20051001, end: 20080130
  2. DIAMICRON (GLICLAZIDE) [Concomitant]
  3. ATARAX [Concomitant]
  4. COLCHIMAX (COLCHICINE, DICYCLOVERINE HYDROCHLORIDE) [Concomitant]
  5. LASIX [Concomitant]
  6. COUMADIN [Concomitant]

REACTIONS (6)
  - BRADYARRHYTHMIA [None]
  - BRADYCARDIA [None]
  - CREATININE RENAL CLEARANCE DECREASED [None]
  - DYSPNOEA [None]
  - MULTI-ORGAN FAILURE [None]
  - RESPIRATORY DISORDER [None]
